FAERS Safety Report 7225620-0 (Version None)
Quarter: 2011Q1

REPORT INFORMATION
  Report Type: 
  Country: None (occurrence: None)
  Receive Date: 20110113
  Receipt Date: 20101222
  Transmission Date: 20110831
  Serious: No
  Sender: FDA-Public Use
  Company Number: US-B.I. PHARMACEUTICALS,INC./RIDGEFIELD-2010-BP-15333BP

PATIENT
  Age: 76 Year
  Sex: Female

DRUGS (11)
  1. VERAPAMIL [Concomitant]
     Route: 048
  2. PRADAXA [Suspect]
     Indication: ATRIAL FIBRILLATION
     Dosage: 300 MG
     Route: 048
     Dates: start: 20101206
  3. FISH OIL [Concomitant]
     Route: 048
  4. VITAMIN C COMPLEX [Concomitant]
     Route: 048
  5. PRAVASTATIN [Concomitant]
     Dosage: 40 MG
     Route: 048
  6. CENTRUM SILVER [Concomitant]
     Route: 048
  7. DIOVAN [Concomitant]
     Dosage: 160 MG
     Route: 048
  8. VERAPAMIL [Concomitant]
     Dosage: 180 MG
     Route: 048
  9. VITAMIN B COMPLEX CAP [Concomitant]
     Route: 048
  10. OSCAL [Concomitant]
     Route: 048
  11. CHROMIUM PIC. [Concomitant]
     Route: 048

REACTIONS (3)
  - FLATULENCE [None]
  - RECTAL HAEMORRHAGE [None]
  - DIARRHOEA [None]
